FAERS Safety Report 15225835 (Version 2)
Quarter: 2018Q3

REPORT INFORMATION
  Report Type: Spontaneous
  Country: US (occurrence: US)
  Receive Date: 20180801
  Receipt Date: 20180803
  Transmission Date: 20181010
  Serious: No
  Sender: FDA-Public Use
  Company Number: US-PFIZER INC-2018305274

PATIENT
  Age: 6 Decade
  Sex: Male

DRUGS (4)
  1. GABAPENTIN. [Suspect]
     Active Substance: GABAPENTIN
     Dosage: UNK, 1X/DAY
  2. GABAPENTIN. [Suspect]
     Active Substance: GABAPENTIN
     Indication: BIPOLAR DISORDER
     Dosage: UNK, 3X/DAY
  3. GABAPENTIN. [Suspect]
     Active Substance: GABAPENTIN
     Dosage: UNK, 2X/DAY
  4. GABAPENTIN. [Suspect]
     Active Substance: GABAPENTIN
     Indication: NEUROPATHY PERIPHERAL
     Dosage: 3 DF, 3X/DAY (EVERY 8 HOURS)

REACTIONS (12)
  - Intentional product use issue [Unknown]
  - Post-traumatic stress disorder [Unknown]
  - Hyperhidrosis [Unknown]
  - Heart rate increased [Unknown]
  - Psychomotor hyperactivity [Unknown]
  - Disease recurrence [Unknown]
  - Drug ineffective [Unknown]
  - Malaise [Unknown]
  - Nausea [Unknown]
  - Feeling abnormal [Unknown]
  - Ear pain [Unknown]
  - Product use in unapproved indication [Unknown]
